FAERS Safety Report 6848201-7 (Version None)
Quarter: 2010Q3

REPORT INFORMATION
  Report Type: 
  Country: None (occurrence: None)
  Receive Date: 20100716
  Receipt Date: 20100708
  Transmission Date: 20110219
  Serious: Yes (Other)
  Sender: FDA-Public Use
  Company Number: B0665362A

PATIENT
  Age: 19 Year
  Sex: Male

DRUGS (2)
  1. SERETIDE [Suspect]
     Indication: ASTHMA
     Route: 055
     Dates: start: 20100310, end: 20100318
  2. CORTISONE [Concomitant]
     Route: 042

REACTIONS (2)
  - LARYNGOSPASM [None]
  - RASH GENERALISED [None]
